FAERS Safety Report 23586817 (Version 4)
Quarter: 2024Q1

REPORT INFORMATION
  Report Type: Spontaneous
  Country: US (occurrence: US)
  Receive Date: 20240301
  Receipt Date: 20240328
  Transmission Date: 20240410
  Serious: Yes (Hospitalization, Other)
  Sender: FDA-Public Use
  Company Number: US-BEH-2024169029

PATIENT
  Age: 44 Year
  Sex: Female
  Weight: 82.7 kg

DRUGS (3)
  1. HIZENTRA [Suspect]
     Active Substance: HUMAN IMMUNOGLOBULIN G
     Indication: Primary immunodeficiency syndrome
     Dosage: UNK
     Route: 058
     Dates: start: 2023
  2. HIZENTRA [Suspect]
     Active Substance: HUMAN IMMUNOGLOBULIN G
     Dosage: UNK
     Route: 065
     Dates: start: 202402
  3. ORILISSA [Suspect]
     Active Substance: ELAGOLIX SODIUM
     Indication: Endometriosis

REACTIONS (15)
  - Pulmonary embolism [Unknown]
  - Migraine [Unknown]
  - Aphasia [Not Recovered/Not Resolved]
  - Dyspnoea [Unknown]
  - Asthenia [Unknown]
  - Fibrin D dimer increased [Unknown]
  - Confusional state [Not Recovered/Not Resolved]
  - Hallucination, visual [Recovering/Resolving]
  - Hallucination, auditory [Not Recovered/Not Resolved]
  - Paranoia [Unknown]
  - Disorientation [Unknown]
  - Creutzfeldt-Jakob disease [Unknown]
  - Suspected transmission of an infectious agent via product [Unknown]
  - Gait disturbance [Unknown]
  - Thrombosis [Recovering/Resolving]

NARRATIVE: CASE EVENT DATE: 20240201
